FAERS Safety Report 4921460-3 (Version None)
Quarter: 2006Q1

REPORT INFORMATION
  Report Type: 
  Country: None (occurrence: None)
  Receive Date: 20060224
  Receipt Date: 20060216
  Transmission Date: 20060701
  Serious: Yes (Life-Threatening, Hospitalization)
  Sender: FDA-Public Use
  Company Number: FR-JNJFOC-20060204276

PATIENT
  Age: 77 Year
  Sex: Female

DRUGS (15)
  1. REMICADE [Suspect]
     Indication: RHEUMATOID ARTHRITIS
     Dosage: DATE OF LAST INFUSION WAS UNKNOWN
     Route: 042
  2. METHOTREXATE [Suspect]
     Indication: RHEUMATOID ARTHRITIS
     Route: 048
  3. CORTANCYL 5MG [Suspect]
     Indication: RHEUMATOID ARTHRITIS
     Route: 048
  4. NOROXIN [Concomitant]
  5. TOPALGIC [Concomitant]
  6. LAMALINE [Concomitant]
  7. LAMALINE [Concomitant]
  8. LAMALINE [Concomitant]
  9. LAMALINE [Concomitant]
  10. SPECIAFOLDINE [Concomitant]
  11. LANZOR [Concomitant]
  12. VOLTAREN [Concomitant]
  13. TEMESTA [Concomitant]
  14. CACIT D3 [Concomitant]
  15. CACIT D3 [Concomitant]

REACTIONS (8)
  - ATRIAL FIBRILLATION [None]
  - CEREBROVASCULAR ACCIDENT [None]
  - COMA [None]
  - EPILEPSY [None]
  - HYPOVOLAEMIC SHOCK [None]
  - MYOCARDIAL INFARCTION [None]
  - SEPTIC SHOCK [None]
  - URINARY TRACT INFECTION [None]
